FAERS Safety Report 4314317-2 (Version None)
Quarter: 2004Q1

REPORT INFORMATION
  Report Type: 
  Country: None (occurrence: None)
  Receive Date: 20040309
  Receipt Date: 20040301
  Transmission Date: 20041129
  Serious: Yes (Disabling)
  Sender: FDA-Public Use
  Company Number: WAES 0403USA00120

PATIENT
  Age: 64 Year
  Sex: Female

DRUGS (8)
  1. CELEBREX [Concomitant]
  2. ZYRTEC [Concomitant]
  3. MONOPRIL [Concomitant]
  4. INSULIN [Concomitant]
  5. GLUCOPHAGE [Concomitant]
  6. SINGULAIR [Suspect]
     Indication: ASTHMA
     Route: 048
  7. PRAVACHOL [Concomitant]
  8. AVANDIA [Concomitant]

REACTIONS (6)
  - ACTIVITIES OF DAILY LIVING IMPAIRED [None]
  - CHEST DISCOMFORT [None]
  - COUGH [None]
  - DYSPNOEA [None]
  - DYSURIA [None]
  - VAGINAL BURNING SENSATION [None]
